FAERS Safety Report 12329173 (Version 1)
Quarter: 2016Q2

REPORT INFORMATION
  Report Type: Spontaneous
  Country: US (occurrence: US)
  Receive Date: 20160503
  Receipt Date: 20160503
  Transmission Date: 20160815
  Serious: Yes (Death, Hospitalization, Other)
  Sender: FDA-Public Use
  Company Number: US-BAYER-2016-082777

PATIENT
  Age: 79 Year
  Sex: Female
  Weight: 120 kg

DRUGS (21)
  1. XARELTO [Suspect]
     Active Substance: RIVAROXABAN
     Indication: CEREBROVASCULAR ACCIDENT PROPHYLAXIS
  2. ADVAIR HFA [Concomitant]
     Active Substance: FLUTICASONE PROPIONATE\SALMETEROL XINAFOATE
  3. FENOFIBRATE. [Concomitant]
     Active Substance: FENOFIBRATE
  4. MAGNESIUM HYDROXIDE. [Concomitant]
     Active Substance: MAGNESIUM HYDROXIDE
  5. PANTOPRAZOLE [Concomitant]
     Active Substance: PANTOPRAZOLE SODIUM
  6. BAYER LOW DOSE [Suspect]
     Active Substance: ASPIRIN
     Indication: PRODUCT USED FOR UNKNOWN INDICATION
     Dosage: 81 MG, QD
  7. LEVOTHYROXINE. [Concomitant]
     Active Substance: LEVOTHYROXINE
  8. TUDORZA PRESSAIR [Concomitant]
     Active Substance: ACLIDINIUM BROMIDE
  9. ALBUTEROL SULFATE. [Concomitant]
     Active Substance: ALBUTEROL SULFATE
  10. SOTALOL. [Concomitant]
     Active Substance: SOTALOL
  11. ACETAMINOPHEN. [Concomitant]
     Active Substance: ACETAMINOPHEN
  12. ACETAZOLAMIDE. [Concomitant]
     Active Substance: ACETAZOLAMIDE
  13. CARDIZEM [Concomitant]
     Active Substance: DILTIAZEM HYDROCHLORIDE
  14. CRESTOR [Concomitant]
     Active Substance: ROSUVASTATIN CALCIUM
  15. LEVETIRACETAM. [Concomitant]
     Active Substance: LEVETIRACETAM
  16. NYSTATIN. [Concomitant]
     Active Substance: NYSTATIN
  17. GABAPENTIN. [Concomitant]
     Active Substance: GABAPENTIN
  18. POTASSIUM CHLORIDE. [Concomitant]
     Active Substance: POTASSIUM CHLORIDE
  19. XARELTO [Suspect]
     Active Substance: RIVAROXABAN
     Indication: ATRIAL FIBRILLATION
     Dosage: 20 MG, QD
     Route: 048
  20. INSULIN [Concomitant]
     Active Substance: INSULIN NOS
  21. TORSEMIDE. [Concomitant]
     Active Substance: TORSEMIDE

REACTIONS (6)
  - Atrial fibrillation [Recovering/Resolving]
  - International normalised ratio abnormal [None]
  - Platelet count decreased [Recovering/Resolving]
  - Fall [None]
  - Extradural haematoma [Fatal]
  - Facial bones fracture [None]

NARRATIVE: CASE EVENT DATE: 20151107
